FAERS Safety Report 5335293-X (Version None)
Quarter: 2007Q2

REPORT INFORMATION
  Report Type: 
  Country: None (occurrence: None)
  Receive Date: 20070525
  Receipt Date: 20070514
  Transmission Date: 20071010
  Serious: Yes (Hospitalization)
  Sender: FDA-Public Use
  Company Number: FR-PFIZER INC-2007029975

PATIENT
  Age: 60 Year
  Sex: Female

DRUGS (2)
  1. CELECOXIB [Suspect]
     Indication: JOINT INJURY
     Route: 048
     Dates: start: 20070217, end: 20070220
  2. CELECOXIB [Suspect]
     Indication: LIMB INJURY

REACTIONS (7)
  - ABDOMINAL PAIN UPPER [None]
  - DUODENITIS [None]
  - GASTRITIS [None]
  - HEPATITIS [None]
  - LIPASE INCREASED [None]
  - RASH PAPULAR [None]
  - VOMITING [None]
